FAERS Safety Report 15096516 (Version 2)
Quarter: 2018Q3

REPORT INFORMATION
  Report Type: Report from Study
  Country: CA (occurrence: CA)
  Receive Date: 20180702
  Receipt Date: 20180809
  Transmission Date: 20181010
  Serious: Yes (Other)
  Sender: FDA-Public Use
  Company Number: PHHY2018CA034073

PATIENT
  Age: 62 Year
  Sex: Male

DRUGS (3)
  1. CLOBETASOL [Concomitant]
     Active Substance: CLOBETASOL
     Indication: RASH
     Dosage: UNK
     Route: 065
     Dates: start: 2011
  2. COSENTYX [Suspect]
     Active Substance: SECUKINUMAB
     Indication: PSORIASIS
     Dosage: 300 MG, UNK
     Route: 058
     Dates: start: 20160630, end: 20160820
  3. TARO CLOBETASOL [Concomitant]
     Indication: PRODUCT USED FOR UNKNOWN INDICATION
     Dosage: UNK
     Route: 065
     Dates: start: 2011

REACTIONS (1)
  - Beta haemolytic streptococcal infection [Recovered/Resolved]

NARRATIVE: CASE EVENT DATE: 20160714
